FAERS Safety Report 24944236 (Version 1)
Quarter: 2025Q1

REPORT INFORMATION
  Report Type: Spontaneous
  Country: FR (occurrence: FR)
  Receive Date: 20250207
  Receipt Date: 20250207
  Transmission Date: 20250409
  Serious: Yes (Hospitalization, Other)
  Sender: ABBVIE
  Company Number: US-ABBVIE-6124439

PATIENT
  Age: 20 Year
  Sex: Male

DRUGS (4)
  1. DEPAKOTE [Suspect]
     Active Substance: DIVALPROEX SODIUM
     Indication: Mental disorder
     Dosage: FORM STRENGTH: 500 MG
     Route: 048
     Dates: start: 20241222, end: 20241224
  2. PALIPERIDONE PALMITATE [Suspect]
     Active Substance: PALIPERIDONE PALMITATE
     Indication: Mental disorder
     Route: 030
     Dates: start: 20241202
  3. TROPATEPINE HYDROCHLORIDE [Concomitant]
     Active Substance: TROPATEPINE HYDROCHLORIDE
     Indication: Product used for unknown indication
  4. VALIUM [Concomitant]
     Active Substance: DIAZEPAM
     Indication: Product used for unknown indication

REACTIONS (3)
  - Extrapyramidal disorder [Recovered/Resolved]
  - Altered state of consciousness [Recovered/Resolved]
  - Seizure [Recovered/Resolved]

NARRATIVE: CASE EVENT DATE: 20241224
